FAERS Safety Report 6067280-0 (Version None)
Quarter: 2009Q1

REPORT INFORMATION
  Report Type: 
  Country: None (occurrence: None)
  Receive Date: 20090204
  Receipt Date: 20090204
  Transmission Date: 20090719
  Serious: Yes (Hospitalization)
  Sender: FDA-Public Use
  Company Number: None

PATIENT
  Age: 78 Year
  Sex: Male
  Weight: 68.7 kg

DRUGS (2)
  1. LABETALOL HCL [Suspect]
     Indication: HYPERTENSION
     Dosage: 200 MG BID PO 10 MG TID PO
     Route: 048
     Dates: start: 20081211, end: 20081222
  2. LABETALOL HCL [Suspect]
     Indication: HYPERTENSION
     Dosage: 200 MG BID PO 10 MG TID PO
     Route: 048
     Dates: start: 20081218

REACTIONS (1)
  - ANGIOEDEMA [None]
